FAERS Safety Report 8038077-7 (Version None)
Quarter: 2012Q1

REPORT INFORMATION
  Report Type: 
  Country: None (occurrence: None)
  Receive Date: 20120111
  Receipt Date: 20120105
  Transmission Date: 20120608
  Serious: Yes (Hospitalization, Disabling, Other)
  Sender: FDA-Public Use
  Company Number: US-MERCK-1108USA01138

PATIENT
  Age: 74 Year
  Sex: Female

DRUGS (2)
  1. FOSAMAX [Suspect]
     Route: 048
     Dates: end: 20090101
  2. ALENDRONATE SODIUM [Suspect]
     Route: 048
     Dates: start: 20090121, end: 20100101

REACTIONS (43)
  - HAEMARTHROSIS [None]
  - FALL [None]
  - KNEE ARTHROPLASTY [None]
  - BURNS SECOND DEGREE [None]
  - CORONARY ARTERY STENOSIS [None]
  - OSTEOPOROSIS [None]
  - PERIPHERAL ARTERIAL OCCLUSIVE DISEASE [None]
  - DYSTHYMIC DISORDER [None]
  - WOUND SECRETION [None]
  - CAROTID ARTERY STENOSIS [None]
  - HYPERLIPIDAEMIA [None]
  - VULVOVAGINAL CANDIDIASIS [None]
  - TRANSIENT ISCHAEMIC ATTACK [None]
  - PALPITATIONS [None]
  - AORTIC STENOSIS [None]
  - HYPERTENSION [None]
  - CHRONIC OBSTRUCTIVE PULMONARY DISEASE [None]
  - FEMUR FRACTURE [None]
  - HAEMORRHAGIC ANAEMIA [None]
  - MACULAR DEGENERATION [None]
  - POLLAKIURIA [None]
  - BRONCHITIS [None]
  - MYOCARDIAL INFARCTION [None]
  - PULMONARY EMBOLISM [None]
  - NECK PAIN [None]
  - MITRAL VALVE INCOMPETENCE [None]
  - ISCHAEMIC CARDIOMYOPATHY [None]
  - TYPE 2 DIABETES MELLITUS [None]
  - DEEP VEIN THROMBOSIS [None]
  - CARDIAC MURMUR [None]
  - GASTROOESOPHAGEAL REFLUX DISEASE [None]
  - AORTIC VALVE INCOMPETENCE [None]
  - VITAMIN D DEFICIENCY [None]
  - ARTERIOSCLEROSIS CORONARY ARTERY [None]
  - ARTHROPATHY [None]
  - OEDEMA PERIPHERAL [None]
  - ARTHRALGIA [None]
  - DIZZINESS [None]
  - OSTEOPENIA [None]
  - HEADACHE [None]
  - URINARY INCONTINENCE [None]
  - MUSCULOSKELETAL PAIN [None]
  - PULMONARY HYPERTENSION [None]
